FAERS Safety Report 5205738-4 (Version None)
Quarter: 2007Q1

REPORT INFORMATION
  Report Type: 
  Country: None (occurrence: None)
  Receive Date: 20070105
  Receipt Date: 20070105
  Transmission Date: 20070707
  Serious: Yes (Hospitalization)
  Sender: FDA-Public Use
  Company Number: None

PATIENT
  Age: 54 Year
  Sex: Male
  Weight: 136.9863 kg

DRUGS (10)
  1. LISINOPRIL [Suspect]
     Indication: HYPERTENSION
     Dosage: 1 TABLET DAILY ORAL
     Route: 048
     Dates: start: 20010601, end: 20060909
  2. MECLIZINE [Concomitant]
  3. GEMFIBROZIL [Concomitant]
  4. GLIPIZIDE [Concomitant]
  5. HYDROCHLOROTHIAZIDE [Concomitant]
  6. METFORMIN [Concomitant]
  7. VERAPAMIL [Concomitant]
  8. TRIAMCINOLONE ACETONIDE [Concomitant]
  9. BETAMETHASONE DIPROPRIONATE [Concomitant]
  10. CALCIPOTRIENE [Concomitant]

REACTIONS (6)
  - ANGIOEDEMA [None]
  - DYSPNOEA [None]
  - PARAESTHESIA ORAL [None]
  - RASH ERYTHEMATOUS [None]
  - RASH PRURITIC [None]
  - SWOLLEN TONGUE [None]
